FAERS Safety Report 9708790 (Version 1)
Quarter: 2013Q4

REPORT INFORMATION
  Report Type: Spontaneous
  Country: US (occurrence: US)
  Receive Date: 20131125
  Receipt Date: 20131125
  Transmission Date: 20140711
  Serious: No
  Sender: FDA-Public Use
  Company Number: US-009507513-1311USA009185

PATIENT
  Sex: Female

DRUGS (1)
  1. AFRIN NO DRIP EXTRA MOISTURIZING NASAL SPRAY [Suspect]
     Indication: EPISTAXIS
     Dosage: UNK, UNKNOWN
     Route: 045

REACTIONS (3)
  - Upper-airway cough syndrome [Unknown]
  - Oropharyngeal discomfort [Unknown]
  - Off label use [Unknown]
